FAERS Safety Report 12991088 (Version 1)
Quarter: 2016Q4

REPORT INFORMATION
  Report Type: Spontaneous
  Country: US (occurrence: US)
  Receive Date: 20161201
  Receipt Date: 20161201
  Transmission Date: 20170207
  Serious: Yes (Other)
  Sender: FDA-Public Use
  Company Number: US-CLINIGEN GROUP PLC/ CLINIGEN HEALTHCARE LTD-E2B_00001742

PATIENT
  Age: 51 Year
  Sex: Male
  Weight: 80 kg

DRUGS (47)
  1. ETHYOL [Suspect]
     Active Substance: AMIFOSTINE
     Dosage: 1660MG* 4 CYCLE(S)
     Route: 042
     Dates: start: 19960604, end: 199608
  2. ETHYOL [Suspect]
     Active Substance: AMIFOSTINE
     Dosage: 1660MG 2ND CYCLE(S)
     Route: 042
     Dates: start: 199606, end: 199606
  3. TORECAN [Concomitant]
     Active Substance: THIETHYLPERAZINE MALATE
     Dosage: UNKNOWN
     Route: 065
  4. ETHYOL [Suspect]
     Active Substance: AMIFOSTINE
     Dosage: 1660MG 1ST CYCLE(S)
     Route: 042
     Dates: start: 19960604, end: 19960604
  5. ETHYOL [Suspect]
     Active Substance: AMIFOSTINE
     Dosage: 1660MG 4TH CYCLE(S)
     Route: 042
     Dates: start: 199608, end: 199608
  6. ETHYOL [Suspect]
     Active Substance: AMIFOSTINE
     Dosage: 1660MG 4TH CYCLE(S)
     Route: 042
     Dates: start: 199608, end: 199608
  7. VEPESID [Concomitant]
     Active Substance: ETOPOSIDE
     Dosage: 185MG QDX3D 3RD CYCLE(S)
     Route: 042
     Dates: start: 199607, end: 199607
  8. KYTRIL [Concomitant]
     Active Substance: GRANISETRON HYDROCHLORIDE
     Dosage: 1MG* 4 CYCLE(S)
     Route: 042
     Dates: start: 19960604, end: 199608
  9. KYTRIL [Concomitant]
     Active Substance: GRANISETRON HYDROCHLORIDE
     Dosage: 1MG 2ND CYCLE(S)
     Route: 042
     Dates: start: 199606, end: 199606
  10. KYTRIL [Concomitant]
     Active Substance: GRANISETRON HYDROCHLORIDE
     Dosage: 1MG 3RD CYCLE(S)
     Route: 042
     Dates: start: 199607, end: 199607
  11. DECADRON [Concomitant]
     Active Substance: DEXAMETHASONE
     Dosage: 1MG* 4 CYCLE(S)
     Route: 042
     Dates: start: 19960604, end: 199608
  12. ETHYOL [Suspect]
     Active Substance: AMIFOSTINE
     Indication: ADVERSE DRUG REACTION
     Dosage: 1660MG* 4 CYCLE(S)
     Route: 042
     Dates: start: 19960604, end: 199608
  13. ETHYOL [Suspect]
     Active Substance: AMIFOSTINE
     Dosage: 1660MG 2ND CYCLE(S)
     Route: 042
     Dates: start: 199606, end: 199606
  14. ETHYOL [Suspect]
     Active Substance: AMIFOSTINE
     Dosage: 1660MG 3RD CYCLE(S)
     Route: 042
     Dates: start: 199607, end: 199607
  15. ETHYOL [Suspect]
     Active Substance: AMIFOSTINE
     Dosage: 1660MG 4TH CYCLE(S)
     Route: 042
     Dates: start: 199608, end: 199608
  16. VEPESID [Concomitant]
     Active Substance: ETOPOSIDE
     Dosage: 185MG QDX3D* 4 CYCLE(S)
     Route: 042
     Dates: start: 19960604, end: 199608
  17. KYTRIL [Concomitant]
     Active Substance: GRANISETRON HYDROCHLORIDE
     Dosage: 1MG 1ST CYCLE(S)
     Route: 042
     Dates: start: 19960604, end: 19960604
  18. ETHYOL [Suspect]
     Active Substance: AMIFOSTINE
     Dosage: 1660MG 1ST CYCLE(S)
     Route: 042
     Dates: start: 19960604, end: 19960604
  19. ETHYOL [Suspect]
     Active Substance: AMIFOSTINE
     Dosage: 1660MG 1ST CYCLE(S)
     Route: 042
     Dates: start: 19960604, end: 19960604
  20. VEPESID [Concomitant]
     Active Substance: ETOPOSIDE
     Dosage: 185MG QDX3D 4TH CYCLE(S)
     Route: 042
     Dates: start: 199608, end: 199608
  21. ETHYOL [Suspect]
     Active Substance: AMIFOSTINE
     Dosage: 1660MG* 4 CYCLE(S)
     Route: 042
     Dates: start: 19960604, end: 199608
  22. ETHYOL [Suspect]
     Active Substance: AMIFOSTINE
     Dosage: 1660MG 2ND CYCLE(S)
     Route: 042
     Dates: start: 199606, end: 199606
  23. ETHYOL [Suspect]
     Active Substance: AMIFOSTINE
     Dosage: 1660MG 4TH CYCLE(S)
     Route: 042
     Dates: start: 199608, end: 199608
  24. ETHYOL [Suspect]
     Active Substance: AMIFOSTINE
     Dosage: 1660MG 4TH CYCLE(S)
     Route: 042
     Dates: start: 199608, end: 199608
  25. CISPLATIN. [Concomitant]
     Active Substance: CISPLATIN
     Dosage: 110MG X1D 3RD CYCLE(S)
     Route: 042
     Dates: start: 199607, end: 199607
  26. CISPLATIN. [Concomitant]
     Active Substance: CISPLATIN
     Dosage: 110MG X1D 4TH CYCLE(S)
     Route: 042
     Dates: start: 199608, end: 199608
  27. ROBITUSSIN DM [Concomitant]
     Active Substance: DEXTROMETHORPHAN HYDROBROMIDE\GUAIFENESIN
     Dosage: UNKNOWN
     Route: 048
  28. DECADRON [Concomitant]
     Active Substance: DEXAMETHASONE
     Dosage: 1MG 1ST CYCLE(S)
     Route: 042
     Dates: start: 19960604, end: 19960604
  29. DECADRON [Concomitant]
     Active Substance: DEXAMETHASONE
     Dosage: 1MG 2ND CYCLE(S)
     Route: 042
     Dates: start: 199606, end: 199606
  30. DECADRON [Concomitant]
     Active Substance: DEXAMETHASONE
     Dosage: 1MG 4TH CYCLE(S)
     Route: 042
     Dates: start: 199608, end: 199608
  31. ETHYOL [Suspect]
     Active Substance: AMIFOSTINE
     Dosage: 1660MG* 4 CYCLE(S)
     Route: 042
     Dates: start: 19960604, end: 199608
  32. ETHYOL [Suspect]
     Active Substance: AMIFOSTINE
     Dosage: 1660MG 2ND CYCLE(S)
     Route: 042
     Dates: start: 199606, end: 199606
  33. ETHYOL [Suspect]
     Active Substance: AMIFOSTINE
     Dosage: 1660MG 3RD CYCLE(S)
     Route: 042
     Dates: start: 199607, end: 199607
  34. CISPLATIN. [Concomitant]
     Active Substance: CISPLATIN
     Dosage: 110MG X1D 1ST CYCLE(S)
     Route: 042
     Dates: start: 19960604, end: 19960604
  35. VEPESID [Concomitant]
     Active Substance: ETOPOSIDE
     Dosage: 185MG QDX3D 2ND CYCLE(S)
     Route: 042
     Dates: start: 199606, end: 199606
  36. ETHYOL [Suspect]
     Active Substance: AMIFOSTINE
     Dosage: 1660MG* 4 CYCLE(S)
     Route: 042
     Dates: start: 19960604, end: 199608
  37. ETHYOL [Suspect]
     Active Substance: AMIFOSTINE
     Dosage: 1660MG 1ST CYCLE(S)
     Route: 042
     Dates: start: 19960604, end: 19960604
  38. ETHYOL [Suspect]
     Active Substance: AMIFOSTINE
     Dosage: 1660MG 1ST CYCLE(S)
     Route: 042
     Dates: start: 19960604, end: 19960604
  39. ETHYOL [Suspect]
     Active Substance: AMIFOSTINE
     Dosage: 1660MG 3RD CYCLE(S)
     Route: 042
     Dates: start: 199607, end: 199607
  40. ETHYOL [Suspect]
     Active Substance: AMIFOSTINE
     Dosage: 1660MG 3RD CYCLE(S)
     Route: 042
     Dates: start: 199607, end: 199607
  41. CISPLATIN. [Concomitant]
     Active Substance: CISPLATIN
     Dosage: 110MG X1D* 4 CYCLE(S)
     Route: 042
     Dates: start: 19960604, end: 199608
  42. KYTRIL [Concomitant]
     Active Substance: GRANISETRON HYDROCHLORIDE
     Dosage: 1MG 4TH CYCLE(S)
     Route: 042
     Dates: start: 199608, end: 199608
  43. DECADRON [Concomitant]
     Active Substance: DEXAMETHASONE
     Dosage: 1MG 3RD CYCLE(S)
     Route: 042
     Dates: start: 199607, end: 199607
  44. ETHYOL [Suspect]
     Active Substance: AMIFOSTINE
     Dosage: 1660MG 2ND CYCLE(S)
     Route: 042
     Dates: start: 199606, end: 199606
  45. ETHYOL [Suspect]
     Active Substance: AMIFOSTINE
     Dosage: 1660MG 3RD CYCLE(S)
     Route: 042
     Dates: start: 199607, end: 199607
  46. CISPLATIN. [Concomitant]
     Active Substance: CISPLATIN
     Dosage: 110MG X1D 2ND CYCLE(S)
     Route: 042
     Dates: start: 199606, end: 199606
  47. VEPESID [Concomitant]
     Active Substance: ETOPOSIDE
     Dosage: 185MG QDX3D 1ST CYCLE(S)
     Route: 042
     Dates: start: 19960604, end: 19960604

REACTIONS (1)
  - Papilloedema [Not Recovered/Not Resolved]

NARRATIVE: CASE EVENT DATE: 19960826
